FAERS Safety Report 9320531 (Version 2)
Quarter: 2013Q2

REPORT INFORMATION
  Report Type: Spontaneous
  Country: US (occurrence: US)
  Receive Date: 20130531
  Receipt Date: 20130627
  Transmission Date: 20140414
  Serious: Yes (Other)
  Sender: FDA-Public Use
  Company Number: US-AMGEN-USASP2013038169

PATIENT
  Age: 69 Year
  Sex: Male

DRUGS (12)
  1. ENBREL [Suspect]
     Indication: PRODUCT USED FOR UNKNOWN INDICATION
     Dosage: 50 MG, QWK
     Route: 058
  2. ASPIRIN [Concomitant]
     Dosage: 81 MG, UNK
  3. GABAPENTIN [Concomitant]
     Dosage: 300 MG, UNK
  4. TOPIRAMATE [Concomitant]
     Dosage: 25 MG, UNK
  5. CRESTOR [Concomitant]
     Dosage: 10 MG, UNK
  6. DILTIAZEM [Concomitant]
     Dosage: 120 MG, UNK
  7. DIOVAN [Concomitant]
     Dosage: 40 MG, UNK
  8. OMEPRAZOLE [Concomitant]
     Dosage: 20 MG, UNK
  9. B COMPLEX                          /00212701/ [Concomitant]
     Dosage: UNK
  10. PYRIDOXINE [Concomitant]
     Dosage: 25 MG, UNK
  11. FOLIC ACID [Concomitant]
     Dosage: 1 MG, UNK
  12. CEPHALEXIN                         /00145501/ [Concomitant]
     Dosage: 500 MG, UNK

REACTIONS (1)
  - Cellulitis [Unknown]
